FAERS Safety Report 18051805 (Version 2)
Quarter: 2020Q3

REPORT INFORMATION
  Report Type: Spontaneous
  Country: BR (occurrence: BR)
  Receive Date: 20200721
  Receipt Date: 20200722
  Transmission Date: 20201103
  Serious: Yes (Death, Hospitalization)
  Sender: FDA-Public Use
  Company Number: BR-CELGENEUS-BRA-20200704727

PATIENT
  Age: 82 Year
  Sex: Male

DRUGS (1)
  1. VIDAZA [Suspect]
     Active Substance: AZACITIDINE
     Indication: MYELODYSPLASTIC SYNDROME
     Route: 065
     Dates: start: 20190114, end: 20200707

REACTIONS (7)
  - Haemorrhage [Unknown]
  - Cardiac failure [Unknown]
  - Pleural effusion [Fatal]
  - Hypertension [Fatal]
  - Myelodysplastic syndrome [Fatal]
  - Pulmonary vascular disorder [Fatal]
  - Pulmonary oedema [Unknown]

NARRATIVE: CASE EVENT DATE: 20200618
